FAERS Safety Report 21756101 (Version 1)
Quarter: 2022Q4

REPORT INFORMATION
  Report Type: Spontaneous
  Country: US (occurrence: US)
  Receive Date: 20221220
  Receipt Date: 20221220
  Transmission Date: 20230112
  Serious: No
  Sender: FDA-Public Use
  Company Number: US-LANTHEUS-LMI-2022-00166

PATIENT
  Sex: Male

DRUGS (1)
  1. NEUROLITE [Suspect]
     Active Substance: BICISATE DIHYDROCHLORIDE
     Indication: Magnetic resonance imaging head
     Dosage: 20 MILLICURIE
     Route: 042
     Dates: start: 20220129, end: 20220129

REACTIONS (3)
  - Radioisotope scan abnormal [Unknown]
  - Product preparation error [Unknown]
  - Drug ineffective [Unknown]

NARRATIVE: CASE EVENT DATE: 20220129
